FAERS Safety Report 9631763 (Version 6)
Quarter: 2014Q2

REPORT INFORMATION
  Report Type: Report from Study
  Country: US (occurrence: US)
  Receive Date: 20131018
  Receipt Date: 20140508
  Transmission Date: 20141212
  Serious: Yes (Hospitalization, Other)
  Sender: FDA-Public Use
  Company Number: US-JNJFOC-20131008134

PATIENT
  Age: 21 Year
  Sex: Male
  Weight: 123.38 kg

DRUGS (2)
  1. STELARA [Suspect]
     Indication: PSORIASIS
     Route: 058
     Dates: start: 20121221, end: 20140321
  2. STELARA [Suspect]
     Indication: PSORIASIS
     Route: 058
     Dates: start: 20101222

REACTIONS (2)
  - Coccidioidomycosis [Recovering/Resolving]
  - Concussion [Unknown]
